FAERS Safety Report 4909224-8 (Version None)
Quarter: 2006Q1

REPORT INFORMATION
  Report Type: 
  Country: None (occurrence: None)
  Receive Date: 20060210
  Receipt Date: 20060210
  Transmission Date: 20060701
  Serious: Yes (Other)
  Sender: FDA-Public Use
  Company Number: None

PATIENT
  Age: 75 Year
  Sex: Female
  Weight: 79.3795 kg

DRUGS (1)
  1. LEVAQUIN [Suspect]
     Indication: CYSTITIS
     Dosage: ONCE  PER DAY
     Dates: start: 20060203, end: 20060208

REACTIONS (3)
  - ARTHRALGIA [None]
  - INSOMNIA [None]
  - TENDON DISORDER [None]
